FAERS Safety Report 4352374-8 (Version None)
Quarter: 2004Q2

REPORT INFORMATION
  Report Type: 
  Country: None (occurrence: None)
  Receive Date: 20040504
  Receipt Date: 20020710
  Transmission Date: 20050107
  Serious: Yes (Hospitalization)
  Sender: FDA-Public Use
  Company Number: US-BRISTOL-MYERS SQUIBB COMPANY-11946399

PATIENT
  Age: 36 Year
  Sex: Male

DRUGS (3)
  1. BMS224818 [Suspect]
     Dosage: REALLOCATED 20-AUG-2002
     Route: 042
     Dates: start: 20020531
  2. PREDNISOLONE [Suspect]
     Dates: start: 20020602
  3. CELLCEPT [Suspect]
     Dates: start: 20020531

REACTIONS (1)
  - PYREXIA [None]
